FAERS Safety Report 5889986-6 (Version None)
Quarter: 2008Q3

REPORT INFORMATION
  Report Type: 
  Country: None (occurrence: None)
  Receive Date: 20080919
  Receipt Date: 20080909
  Transmission Date: 20090109
  Serious: Yes (Death, Hospitalization)
  Sender: FDA-Public Use
  Company Number: BE-PFIZER INC-2008037165

PATIENT
  Sex: Female

DRUGS (6)
  1. SU-011,248 [Suspect]
     Indication: HEAD AND NECK CANCER
     Dosage: DAILY DOSE:37.5MG
     Route: 048
     Dates: start: 20080409, end: 20080422
  2. OMEPRAZOLE [Concomitant]
     Route: 048
     Dates: end: 20080401
  3. LEVOTHYROXINE SODIUM [Concomitant]
     Route: 048
  4. FOSAMAX [Concomitant]
     Route: 048
     Dates: end: 20080401
  5. PULMICORT-100 [Concomitant]
     Route: 055
     Dates: end: 20080401
  6. CALCIUM CARBONATE [Concomitant]
     Route: 048
     Dates: end: 20080401

REACTIONS (5)
  - GENERAL PHYSICAL HEALTH DETERIORATION [None]
  - HYPOKALAEMIA [None]
  - LUNG INFECTION [None]
  - RENAL FAILURE ACUTE [None]
  - TRACHEO-OESOPHAGEAL FISTULA [None]
